FAERS Safety Report 23248723 (Version 1)
Quarter: 2023Q4

REPORT INFORMATION
  Report Type: Spontaneous
  Country: DE (occurrence: DE)
  Receive Date: 20231201
  Receipt Date: 20231201
  Transmission Date: 20240110
  Serious: No
  Sender: FDA-Public Use
  Company Number: DE-ALKEM LABORATORIES LIMITED-DE-ALKEM-2023-10338

PATIENT
  Age: 12 Year
  Sex: Male

DRUGS (3)
  1. TACROLIMUS [Suspect]
     Active Substance: TACROLIMUS
     Indication: Pyoderma gangrenosum
     Dosage: UNK
     Route: 065
  2. DAPSONE [Suspect]
     Active Substance: DAPSONE
     Indication: Pyoderma gangrenosum
     Dosage: 75 MG/DAY
     Route: 065
  3. DAPSONE [Suspect]
     Active Substance: DAPSONE
     Dosage: 50 MG/DAY (REDUCED DOSE)
     Route: 065

REACTIONS (1)
  - Methaemoglobinaemia [Recovering/Resolving]
